FAERS Safety Report 18457759 (Version 1)
Quarter: 2020Q4

REPORT INFORMATION
  Report Type: Spontaneous
  Country: DE (occurrence: DE)
  Receive Date: 20201103
  Receipt Date: 20201103
  Transmission Date: 20210114
  Serious: Yes (Other)
  Sender: FDA-Public Use
  Company Number: DE-NEBO-PC005927

PATIENT
  Age: 16 Year
  Sex: Female
  Weight: 49.2 kg

DRUGS (2)
  1. MONOFER [Suspect]
     Active Substance: IRON ISOMALTOSIDE 1000
     Indication: ANAEMIA
     Route: 042
     Dates: start: 20200518, end: 20200518
  2. FOLIC ACID GENERIC [Concomitant]
     Indication: PRODUCT USED FOR UNKNOWN INDICATION

REACTIONS (7)
  - Dyspnoea [Recovered/Resolved]
  - Maternal exposure during pregnancy [Recovered/Resolved]
  - Off label use [Recovered/Resolved]
  - Hyperhidrosis [Recovered/Resolved]
  - Product use issue [Recovered/Resolved]
  - Chest discomfort [Recovered/Resolved]
  - Premature separation of placenta [Recovered/Resolved]

NARRATIVE: CASE EVENT DATE: 20200518
